FAERS Safety Report 14972628 (Version 10)
Quarter: 2019Q2

REPORT INFORMATION
  Report Type: Spontaneous
  Country: US (occurrence: US)
  Receive Date: 20180605
  Receipt Date: 20190529
  Transmission Date: 20190711
  Serious: Yes (Disabling, Other)
  Sender: FDA-Public Use
  Company Number: US-PFIZER INC-2018224755

PATIENT
  Age: 72 Year
  Sex: Female

DRUGS (35)
  1. DILANTIN [Suspect]
     Active Substance: PHENYTOIN
     Indication: SEIZURE
     Dosage: 100 MG, 3X/DAY
     Route: 048
     Dates: start: 20120216, end: 20120226
  2. DILANTIN [Suspect]
     Active Substance: PHENYTOIN
     Dosage: 100 MG, 2X/DAY (TWO TABS IN AM AND ONE AT HS)
     Route: 048
     Dates: start: 20130724, end: 20140317
  3. DILANTIN [Suspect]
     Active Substance: PHENYTOIN
     Dosage: 200 MG, 2X/DAY
     Route: 048
     Dates: start: 20131225, end: 20131225
  4. KEPPRA [Concomitant]
     Active Substance: LEVETIRACETAM
     Dosage: UNK
  5. AMBIEN [Concomitant]
     Active Substance: ZOLPIDEM TARTRATE
     Dosage: 5 MG, (EVERY HOUR)
     Route: 048
  6. DIAMOX SEQUELS [Concomitant]
     Active Substance: ACETAZOLAMIDE
     Indication: SEIZURE
     Dosage: UNK
     Dates: start: 2008
  7. ATORVASTATIN [Concomitant]
     Active Substance: ATORVASTATIN
     Dosage: 20 MG, 1X/DAY
     Route: 048
  8. BISACODYL. [Concomitant]
     Active Substance: BISACODYL
     Dosage: 10 MG, 1X/DAY
  9. ACETAMINOPHEN. [Concomitant]
     Active Substance: ACETAMINOPHEN
     Indication: BODY TEMPERATURE INCREASED
  10. ASPIRIN. [Concomitant]
     Active Substance: ASPIRIN
     Dosage: 81 MG, DAILY
     Route: 048
  11. DILANTIN [Suspect]
     Active Substance: PHENYTOIN
     Dosage: 500 MG, UNK
     Route: 048
     Dates: start: 20120228, end: 20120228
  12. NABUMETONE. [Concomitant]
     Active Substance: NABUMETONE
     Dosage: 1500 MG, 1X/DAY
  13. ROCALTROL [Concomitant]
     Active Substance: CALCITRIOL
     Dosage: 0.5 UG, DAILY
     Route: 048
  14. XOPENEX [Concomitant]
     Active Substance: LEVALBUTEROL HYDROCHLORIDE
     Dosage: UNK, AS NEEDED
  15. LISINOPRIL. [Concomitant]
     Active Substance: LISINOPRIL
     Dosage: 2.5 MG, 1X/DAY
     Route: 048
  16. ZOLPIDEM [Concomitant]
     Active Substance: ZOLPIDEM\ZOLPIDEM TARTRATE
     Dosage: 5 MG, AS NEEDED
     Route: 048
  17. MYSOLINE [Concomitant]
     Active Substance: PRIMIDONE
     Dosage: 250 MG, 2X/DAY
     Route: 048
  18. NEXIUM [Concomitant]
     Active Substance: ESOMEPRAZOLE MAGNESIUM
     Dosage: 40 MG, DAILY
     Route: 048
  19. SINGULAIR [Concomitant]
     Active Substance: MONTELUKAST SODIUM
     Dosage: 10 MG, DAILY
     Route: 048
  20. LIPITOR [Concomitant]
     Active Substance: ATORVASTATIN CALCIUM
     Dosage: 20 MG, 1X/DAY
     Route: 048
  21. PRIMIDONE. [Concomitant]
     Active Substance: PRIMIDONE
     Dosage: 250 MG, 2X/DAY
     Route: 048
  22. FLOVENT [Concomitant]
     Active Substance: FLUTICASONE PROPIONATE
     Dosage: 110 UG, 2X/DAY
  23. TRAMADOL. [Concomitant]
     Active Substance: TRAMADOL
     Indication: PAIN
     Dosage: 50 MG, AS NEEDED (2 TO 3 TABLETS DAILY)
  24. PANTOPRAZOLE [Concomitant]
     Active Substance: PANTOPRAZOLE
     Dosage: 40 MG, DAILY
     Route: 048
  25. MAALOX ANTACID [Concomitant]
     Active Substance: ALUMINUM HYDROXIDE\DIMETHICONE\MAGNESIUM HYDROXIDE
     Dosage: UNK, AS NEEDED
  26. LANOXIN [Concomitant]
     Active Substance: DIGOXIN
     Dosage: 0.125 MG, DAILY
     Route: 048
  27. DILANTIN [Suspect]
     Active Substance: PHENYTOIN
     Indication: ANEURYSM
     Dosage: 100 MG, 2X/DAY
     Route: 048
     Dates: start: 1976, end: 20130724
  28. FELDENE [Concomitant]
     Active Substance: PIROXICAM
     Dosage: UNK
  29. ACETAZOLAMIDE. [Concomitant]
     Active Substance: ACETAZOLAMIDE
     Dosage: 250 MG, 2X/DAY
     Route: 048
  30. ZOFRAN [Concomitant]
     Active Substance: ONDANSETRON HYDROCHLORIDE
     Indication: NAUSEA
     Dosage: 4 MG, AS NEEDED
  31. ACETAMINOPHEN. [Concomitant]
     Active Substance: ACETAMINOPHEN
     Indication: HEADACHE
     Dosage: 650 MG, AS NEEDED
  32. FERROUS SULFATE. [Concomitant]
     Active Substance: FERROUS SULFATE
     Dosage: 325 MG, DAILY
     Route: 048
  33. DOCUSATE [Concomitant]
     Active Substance: DOCUSATE
     Dosage: 100 MG, DAILY
     Route: 048
  34. CARVEDILOL. [Concomitant]
     Active Substance: CARVEDILOL
     Dosage: 6.25 MG, 2X/DAY
     Route: 048
  35. COREG [Concomitant]
     Active Substance: CARVEDILOL
     Dosage: 6.25 MG, DAILY
     Route: 048

REACTIONS (3)
  - Neuropathy peripheral [Not Recovered/Not Resolved]
  - Cerebellar atrophy [Not Recovered/Not Resolved]
  - Encephalomalacia [Unknown]

NARRATIVE: CASE EVENT DATE: 20111031
